FAERS Safety Report 6377052-5 (Version None)
Quarter: 2009Q3

REPORT INFORMATION
  Report Type: 
  Country: None (occurrence: None)
  Receive Date: 20090925
  Receipt Date: 20090914
  Transmission Date: 20100115
  Serious: Yes (Hospitalization)
  Sender: FDA-Public Use
  Company Number: DE-ELI_LILLY_AND_COMPANY-DE200909002913

PATIENT
  Sex: Male
  Weight: 104 kg

DRUGS (7)
  1. PEMETREXED [Suspect]
     Indication: NON-SMALL CELL LUNG CANCER
     Dosage: 500 MG/M2, ON D1 EVERY 21 DAYS
     Route: 042
  2. PEMETREXED [Suspect]
     Dosage: UNK, ON D1 EVERY 21 DAYS
     Route: 042
     Dates: start: 20090528, end: 20090914
  3. BEST SUPPORTIVE CARE [Suspect]
     Indication: NON-SMALL CELL LUNG CANCER
     Dosage: UNK, ON D1 EVERY 21 DAYS
     Route: 042
     Dates: start: 20090528, end: 20090914
  4. CISPLATIN [Suspect]
     Indication: NON-SMALL CELL LUNG CANCER
     Dosage: 75 MG/M2, ON D1 EVERY 21 DAYS
     Route: 042
  5. FOLIC ACID [Concomitant]
     Indication: PROPHYLAXIS
     Dates: start: 20090217
  6. VIT B12 [Concomitant]
     Indication: PROPHYLAXIS
     Dates: start: 20090526, end: 20090730
  7. DEXAMETHASONE 4MG TAB [Concomitant]
     Indication: PROPHYLAXIS
     Dates: start: 20090820, end: 20090822

REACTIONS (2)
  - GENERAL PHYSICAL HEALTH DETERIORATION [None]
  - LEUKOPENIA [None]
